FAERS Safety Report 11245012 (Version 1)
Quarter: 2015Q3

REPORT INFORMATION
  Report Type: Spontaneous
  Country: IT (occurrence: IT)
  Receive Date: 20150707
  Receipt Date: 20150707
  Transmission Date: 20151125
  Serious: Yes (Hospitalization)
  Sender: FDA-Public Use
  Company Number: IT-BAYER-2015-369476

PATIENT
  Age: 90 Year
  Sex: Female

DRUGS (1)
  1. ASPIRINA [Suspect]
     Active Substance: ASPIRIN
     Indication: OROPHARYNGEAL PAIN
     Dosage: 2 DF, TID
     Route: 048
     Dates: start: 20150207, end: 20150209

REACTIONS (1)
  - Localised oedema [Recovered/Resolved]

NARRATIVE: CASE EVENT DATE: 20150209
